FAERS Safety Report 12916782 (Version 1)
Quarter: 2016Q4

REPORT INFORMATION
  Report Type: Spontaneous
  Country: US (occurrence: US)
  Receive Date: 20161103
  Receipt Date: 20161103
  Transmission Date: 20170207
  Serious: Yes (Other)
  Sender: FDA-Public Use
  Company Number: None

PATIENT
  Age: 27 Year
  Sex: Female
  Weight: 90.9 kg

DRUGS (5)
  1. BUPROPION XL 150MG [Suspect]
     Active Substance: BUPROPION
     Indication: DEPRESSION
     Dosage: ?          QUANTITY:30 TABLET(S);?
     Route: 048
     Dates: start: 20160928, end: 20161102
  2. ACETAMINOPHEN. [Concomitant]
     Active Substance: ACETAMINOPHEN
  3. LORAZEPAM. [Concomitant]
     Active Substance: LORAZEPAM
  4. ESCITALOPRAM [Concomitant]
     Active Substance: ESCITALOPRAM OXALATE
  5. GENERIC OF ORTHO-TRI-CYCLEN LO [Concomitant]

REACTIONS (4)
  - Tremor [None]
  - Abnormal dreams [None]
  - Somnambulism [None]
  - Therapy change [None]

NARRATIVE: CASE EVENT DATE: 20161012
